FAERS Safety Report 25236200 (Version 2)
Quarter: 2025Q2

REPORT INFORMATION
  Report Type: Report from Study
  Country: KR (occurrence: KR)
  Receive Date: 20250424
  Receipt Date: 20250513
  Transmission Date: 20250717
  Serious: Yes (Other)
  Sender: TAKEDA
  Company Number: KR-TAKEDA-2025TUS018002

PATIENT
  Sex: Female

DRUGS (14)
  1. BRIGATINIB [Suspect]
     Active Substance: BRIGATINIB
     Indication: Non-small cell lung cancer
     Dosage: 90 MILLIGRAM, QD
     Dates: start: 20220523, end: 20220530
  2. BRIGATINIB [Suspect]
     Active Substance: BRIGATINIB
     Dosage: 180 MILLIGRAM, QD
     Dates: start: 20220531, end: 20221124
  3. BRIGATINIB [Suspect]
     Active Substance: BRIGATINIB
     Dosage: 90 MILLIGRAM, QD
     Dates: start: 20221125, end: 20221207
  4. BRIGATINIB [Suspect]
     Active Substance: BRIGATINIB
     Dosage: 120 MILLIGRAM, QD
     Dates: start: 20221208
  5. Megestrol acetate daewon [Concomitant]
     Indication: Prophylaxis
     Dosage: 10 MILLILITER, QD
     Dates: start: 20220613
  6. TYLENOL 8HR [Concomitant]
     Active Substance: ACETAMINOPHEN
     Indication: Pain prophylaxis
     Dosage: 1300 MILLIGRAM, QD
     Dates: start: 20220613
  7. Fotagel [Concomitant]
     Indication: Diarrhoea
     Dosage: 60 MILLILITER, QD
     Dates: start: 20220624
  8. Fotagel [Concomitant]
     Indication: Prophylaxis against diarrhoea
  9. Ramnos [Concomitant]
     Indication: Prophylaxis against diarrhoea
     Dosage: 500 MILLIGRAM, QD
     Dates: start: 20220725
  10. HUMULIN R [Concomitant]
     Active Substance: INSULIN HUMAN
     Indication: Diabetes mellitus
  11. DIGOXIN [Concomitant]
     Active Substance: DIGOXIN
     Indication: Hypertension
     Dosage: 0.25 MILLIGRAM, QD
     Dates: start: 20220516
  12. LINAGLIPTIN\METFORMIN HYDROCHLORIDE [Concomitant]
     Active Substance: LINAGLIPTIN\METFORMIN HYDROCHLORIDE
     Indication: Diabetes mellitus
     Dates: start: 20220516, end: 20230330
  13. LINAGLIPTIN\METFORMIN HYDROCHLORIDE [Concomitant]
     Active Substance: LINAGLIPTIN\METFORMIN HYDROCHLORIDE
  14. CRESTOR [Concomitant]
     Active Substance: ROSUVASTATIN CALCIUM
     Indication: Hypertension
     Dosage: 5 MILLIGRAM, QD
     Dates: start: 20220516

REACTIONS (1)
  - Diabetes mellitus [Recovered/Resolved]

NARRATIVE: CASE EVENT DATE: 20230331
